FAERS Safety Report 5031328-2 (Version None)
Quarter: 2006Q2

REPORT INFORMATION
  Report Type: 
  Country: None (occurrence: None)
  Receive Date: 20060615
  Receipt Date: 20060606
  Transmission Date: 20061013
  Serious: Yes (Hospitalization)
  Sender: FDA-Public Use
  Company Number: 2006BI008157

PATIENT
  Age: 40 Year
  Sex: Female

DRUGS (3)
  1. AVONEX [Suspect]
     Indication: MULTIPLE SCLEROSIS
     Dosage: 30 UG; QW; IM
     Route: 030
     Dates: start: 20010201
  2. AMITRIPTYLINE HCL [Concomitant]
  3. GABAPENTIN [Concomitant]

REACTIONS (2)
  - BREAST MASS [None]
  - INFLUENZA LIKE ILLNESS [None]
